FAERS Safety Report 6987709-0 (Version None)
Quarter: 2010Q3

REPORT INFORMATION
  Report Type: 
  Country: None (occurrence: None)
  Receive Date: 20100916
  Receipt Date: 20100806
  Transmission Date: 20110219
  Serious: No
  Sender: FDA-Public Use
  Company Number: US-ABBOTT-10P-163-0651311-00

PATIENT
  Age: 41 Year
  Weight: 71.278 kg

DRUGS (2)
  1. TRILIPIX [Suspect]
     Indication: DYSLIPIDAEMIA
     Route: 048
     Dates: start: 20090414
  2. TRILIPIX [Suspect]
     Route: 048
     Dates: end: 20091218

REACTIONS (2)
  - GLOMERULAR FILTRATION RATE DECREASED [None]
  - GLOMERULAR FILTRATION RATE INCREASED [None]
